FAERS Safety Report 21380563 (Version 2)
Quarter: 2022Q3

REPORT INFORMATION
  Report Type: Report from Study
  Country: US (occurrence: US)
  Receive Date: 20220927
  Receipt Date: 20220928
  Transmission Date: 20221026
  Serious: Yes (Other)
  Sender: FDA-Public Use
  Company Number: US-ABBVIE-4129932

PATIENT
  Age: 65 Year
  Sex: Female

DRUGS (3)
  1. HUMIRA [Suspect]
     Active Substance: ADALIMUMAB
     Indication: Psoriatic arthropathy
     Dosage: CITRATE FREE
     Route: 058
     Dates: end: 202204
  2. Pfizer/BioNtech Covid 19 vaccine [Concomitant]
     Indication: COVID-19 immunisation
     Dosage: 1 IN ONCE
     Route: 030
  3. Pfizer/BioNtech Covid 19 vaccine [Concomitant]
     Indication: COVID-19 immunisation
     Dosage: 1 IN ONCE
     Route: 030

REACTIONS (4)
  - Interstitial lung disease [Unknown]
  - Lung disorder [Not Recovered/Not Resolved]
  - Interstitial lung disease [Unknown]
  - Biopsy lung abnormal [Unknown]

NARRATIVE: CASE EVENT DATE: 20220501
